FAERS Safety Report 16360861 (Version 4)
Quarter: 2021Q2

REPORT INFORMATION
  Report Type: Report from Study
  Country: US (occurrence: US)
  Receive Date: 20190528
  Receipt Date: 20210607
  Transmission Date: 20210716
  Serious: Yes (Death, Hospitalization)
  Sender: FDA-Public Use
  Company Number: US-ROCHE-2324077

PATIENT
  Age: 42 Year
  Sex: Female
  Weight: 98 kg

DRUGS (10)
  1. VELTASSA [Concomitant]
     Active Substance: PATIROMER
     Indication: HYPERKALAEMIA
  2. IBRUTINIB [Suspect]
     Active Substance: IBRUTINIB
     Indication: CHRONIC LYMPHOCYTIC LEUKAEMIA
     Route: 048
     Dates: start: 20180703, end: 20210424
  3. ATOVAQUONE. [Concomitant]
     Active Substance: ATOVAQUONE
     Indication: HYPERKALAEMIA
  4. REMDESIVIR. [Concomitant]
     Active Substance: REMDESIVIR
     Dates: start: 20210423
  5. OBINUTUZUMAB. [Suspect]
     Active Substance: OBINUTUZUMAB
     Indication: CHRONIC LYMPHOCYTIC LEUKAEMIA
     Dosage: GIVEN WEEKLY DURING CYCLE 1, THEN MONTHLY DURING CYCLES 2?6
     Route: 042
     Dates: start: 20180731, end: 20181218
  6. DECADRON [Concomitant]
     Active Substance: DEXAMETHASONE
     Dates: start: 20210422
  7. DECADRON [Concomitant]
     Active Substance: DEXAMETHASONE
     Dates: start: 20210423
  8. TOCILIZUMAB. [Concomitant]
     Active Substance: TOCILIZUMAB
     Route: 065
     Dates: start: 20210422
  9. REMDESIVIR. [Concomitant]
     Active Substance: REMDESIVIR
     Dates: start: 20210422
  10. TOCILIZUMAB. [Concomitant]
     Active Substance: TOCILIZUMAB
     Dates: start: 20210423

REACTIONS (6)
  - Chest pain [Unknown]
  - Cough [Unknown]
  - Chills [Unknown]
  - COVID-19 [Fatal]
  - Dyspnoea [Unknown]
  - Pyrexia [Unknown]

NARRATIVE: CASE EVENT DATE: 20190518
